FAERS Safety Report 19847263 (Version 1)
Quarter: 2021Q3

REPORT INFORMATION
  Report Type: Spontaneous
  Country: PR (occurrence: PR)
  Receive Date: 20210917
  Receipt Date: 20210917
  Transmission Date: 20211014
  Serious: Yes (Hospitalization, Other)
  Sender: FDA-Public Use
  Company Number: PR-BIOVITRUM-2021PR8241

PATIENT
  Sex: Male

DRUGS (1)
  1. SYNAGIS [Suspect]
     Active Substance: PALIVIZUMAB
     Indication: PREMATURE BABY
     Route: 030
     Dates: start: 20210813

REACTIONS (4)
  - Haemoglobin decreased [Unknown]
  - Gastrooesophageal reflux disease [Unknown]
  - Bronchiolitis [Unknown]
  - Nasal congestion [Unknown]
